FAERS Safety Report 7960519-3 (Version None)
Quarter: 2011Q4

REPORT INFORMATION
  Report Type: 
  Country: None (occurrence: None)
  Receive Date: 20111206
  Receipt Date: 20111129
  Transmission Date: 20120403
  Serious: Yes (Hospitalization)
  Sender: FDA-Public Use
  Company Number: JP-AMGEN-JPNCT2011063237

PATIENT
  Age: 70 Year
  Sex: Male
  Weight: 66 kg

DRUGS (11)
  1. FOLIC ACID [Concomitant]
     Indication: ADVERSE REACTION
     Dosage: 5MG/WEEK
     Route: 048
     Dates: start: 20111118
  2. METFORMIN HCL [Concomitant]
     Indication: DIABETES MELLITUS
     Dosage: AFTER EVERY MEAL
     Route: 048
     Dates: start: 20091215
  3. BLINDED DENOSUMAB [Suspect]
     Indication: RHEUMATOID ARTHRITIS
     Route: 058
     Dates: start: 20110806
  4. METHOTREXATE [Concomitant]
     Indication: RHEUMATOID ARTHRITIS
     Dosage: 10MG/WEEK
     Route: 048
     Dates: start: 20110909
  5. LEVOFLOXACIN [Concomitant]
     Indication: CATARACT
     Dosage: FOUR DROPS OF BOTH EYES
     Route: 047
     Dates: start: 20110324
  6. BLINDED PLACEBO [Suspect]
     Indication: RHEUMATOID ARTHRITIS
     Route: 058
     Dates: start: 20110806
  7. AMARYL [Concomitant]
     Indication: DIABETES MELLITUS
     Dosage: AFTER MORNING, SUPPER
     Route: 048
     Dates: start: 20091215
  8. RINBETA PF [Concomitant]
     Indication: CATARACT
     Dosage: FOUR DROPS OF BOTH EYES
     Route: 047
     Dates: start: 20110324
  9. KARY UNI [Concomitant]
     Indication: CATARACT
     Dosage: FOUR DROPS OF RIGHT EYE
     Route: 047
     Dates: start: 20100413
  10. CALCICHEW D3 [Concomitant]
     Indication: PRODUCT USED FOR UNKNOWN INDICATION
     Dosage: 2 DF, QD
     Route: 048
     Dates: start: 20110806
  11. DICLOD [Concomitant]
     Indication: CATARACT
     Dosage: FOUR DROPS OF BOTH EYES
     Route: 047
     Dates: start: 20110324

REACTIONS (1)
  - CEREBRAL INFARCTION [None]
